FAERS Safety Report 7941061 (Version 3)
Quarter: 2013Q2

REPORT INFORMATION
  Report Type: Report from Study
  Country: FR (occurrence: FR)
  Receive Date: 20110511
  Receipt Date: 20130415
  Transmission Date: 20140414
  Serious: Yes (Hospitalization, Other)
  Sender: FDA-Public Use
  Company Number: FR-JNJFOC-20110501568

PATIENT
  Age: 33 Year
  Sex: Male
  Weight: 71 kg

DRUGS (10)
  1. REMICADE [Suspect]
     Indication: CROHN^S DISEASE
     Route: 042
     Dates: start: 20070912
  2. REMICADE [Suspect]
     Indication: CROHN^S DISEASE
     Route: 042
     Dates: start: 20071031
  3. REMICADE [Suspect]
     Indication: CROHN^S DISEASE
     Route: 042
     Dates: start: 20071106
  4. REMICADE [Suspect]
     Indication: CROHN^S DISEASE
     Route: 042
     Dates: start: 20071219
  5. REMICADE [Suspect]
     Indication: CROHN^S DISEASE
     Route: 042
     Dates: start: 20060317
  6. IMUREL [Concomitant]
     Indication: CROHN^S DISEASE
     Route: 065
     Dates: start: 2006, end: 20080912
  7. SALAZOPYRINE [Concomitant]
     Indication: CROHN^S DISEASE
     Route: 065
     Dates: start: 2006
  8. IMUREL [Concomitant]
     Indication: CROHN^S DISEASE
     Route: 065
     Dates: start: 20080913, end: 20100908
  9. IMUREL [Concomitant]
     Indication: CROHN^S DISEASE
     Dosage: 1.5 TABLET
     Route: 065
     Dates: start: 20100908
  10. SOLUPRED [Concomitant]
     Route: 065

REACTIONS (3)
  - Ileal fistula [Recovered/Resolved]
  - Gastrointestinal fistula [Recovered/Resolved]
  - Infected fistula [Unknown]
